FAERS Safety Report 5576544-6 (Version None)
Quarter: 2007Q4

REPORT INFORMATION
  Report Type: 
  Country: None (occurrence: None)
  Receive Date: 20071228
  Receipt Date: 20071218
  Transmission Date: 20080405
  Serious: Yes (Hospitalization)
  Sender: FDA-Public Use
  Company Number: B0501048A

PATIENT
  Age: 80 Year
  Sex: Female
  Weight: 54.4 kg

DRUGS (9)
  1. AUGMENTIN '125' [Suspect]
     Indication: PROPHYLAXIS
     Dosage: 1UNIT THREE TIMES PER DAY
     Route: 048
     Dates: start: 20071123, end: 20071128
  2. PREVISCAN [Suspect]
     Indication: ATRIAL FIBRILLATION
     Dosage: .75UNIT PER DAY
     Route: 048
     Dates: start: 20070101, end: 20071126
  3. TENORMIN [Concomitant]
     Dosage: 50MG PER DAY
     Route: 048
  4. LAROXYL [Concomitant]
     Dosage: 50MG PER DAY
     Route: 048
  5. POTASSIUM CHLORIDE [Concomitant]
     Dosage: 1UNIT PER DAY
     Route: 048
  6. VOGALENE [Concomitant]
     Dosage: 1UNIT THREE TIMES PER DAY
     Route: 048
  7. TRANSIPEG [Concomitant]
     Dosage: 1UNIT TWICE PER DAY
     Route: 048
  8. GAVISCON [Concomitant]
     Dosage: 1UNIT PER DAY
     Route: 048
  9. ENTERAL FEEDS [Concomitant]
     Dosage: 1UNIT PER DAY
     Route: 065

REACTIONS (4)
  - DRUG INTERACTION [None]
  - INTERNATIONAL NORMALISED RATIO INCREASED [None]
  - MELAENA [None]
  - RECTAL HAEMORRHAGE [None]
